FAERS Safety Report 24614230 (Version 1)
Quarter: 2024Q4

REPORT INFORMATION
  Report Type: Spontaneous
  Country: RO (occurrence: RO)
  Receive Date: 20241113
  Receipt Date: 20241113
  Transmission Date: 20250115
  Serious: Yes (Hospitalization, Other)
  Sender: FRESENIUS KABI
  Company Number: RO-009507513-2410ROU012245

PATIENT
  Age: 62 Year

DRUGS (26)
  1. PEMETREXED [Suspect]
     Active Substance: PEMETREXED
     Indication: Non-small cell lung cancer stage IV
     Dosage: UNK
     Dates: end: 202205
  2. PEMETREXED [Suspect]
     Active Substance: PEMETREXED
     Indication: Gastric cancer
     Dosage: UNK
     Dates: end: 202208
  3. PEMETREXED [Suspect]
     Active Substance: PEMETREXED
     Dosage: UNK
     Dates: end: 202209
  4. PEMETREXED [Suspect]
     Active Substance: PEMETREXED
     Dosage: UNK
     Dates: start: 202307, end: 202307
  5. PEMETREXED [Suspect]
     Active Substance: PEMETREXED
     Dosage: UNK
     Dates: start: 202308, end: 202308
  6. PEMETREXED [Suspect]
     Active Substance: PEMETREXED
     Dosage: UNK
     Dates: start: 202309, end: 202309
  7. PEMETREXED [Suspect]
     Active Substance: PEMETREXED
     Dosage: UNK
     Dates: start: 202309, end: 202309
  8. PEMETREXED [Suspect]
     Active Substance: PEMETREXED
     Dosage: UNK
  9. CARBOPLATIN [Suspect]
     Active Substance: CARBOPLATIN
     Indication: Non-small cell lung cancer stage IV
     Dosage: UNK
     Dates: end: 202205
  10. CARBOPLATIN [Suspect]
     Active Substance: CARBOPLATIN
     Indication: Gastric cancer
     Dosage: UNK
     Dates: end: 202208
  11. CARBOPLATIN [Suspect]
     Active Substance: CARBOPLATIN
     Dosage: UNK
     Dates: start: 202209, end: 202209
  12. PEMBROLIZUMAB [Suspect]
     Active Substance: PEMBROLIZUMAB
     Indication: Non-small cell lung cancer stage IV
     Dosage: UNK?FOA-SOLUTION FOR INJECTION
     Dates: end: 202205
  13. PEMBROLIZUMAB [Suspect]
     Active Substance: PEMBROLIZUMAB
     Indication: Gastric cancer
     Dosage: UNK?FOA-SOLUTION FOR INJECTION
     Dates: end: 202208
  14. PEMBROLIZUMAB [Suspect]
     Active Substance: PEMBROLIZUMAB
     Dosage: UNK?FOA-SOLUTION FOR INJECTION
     Dates: end: 202209
  15. PEMBROLIZUMAB [Suspect]
     Active Substance: PEMBROLIZUMAB
     Dosage: 200 MILLIGRAM, Q3W?FOA-SOLUTION FOR INJECTION
     Dates: end: 202307
  16. PEMBROLIZUMAB [Suspect]
     Active Substance: PEMBROLIZUMAB
     Dosage: 200 MILLIGRAM, Q3W?FOA-SOLUTION FOR INJECTION
     Dates: start: 202308, end: 202308
  17. PEMBROLIZUMAB [Suspect]
     Active Substance: PEMBROLIZUMAB
     Dosage: 200 MILLIGRAM, Q3W?FOA-SOLUTION FOR INJECTION
     Dates: start: 202309, end: 202309
  18. PEMBROLIZUMAB [Suspect]
     Active Substance: PEMBROLIZUMAB
     Dosage: 200 MILLIGRAM, Q3W?FOA-SOLUTION FOR INJECTION
     Dates: start: 202309, end: 202309
  19. PEMBROLIZUMAB [Suspect]
     Active Substance: PEMBROLIZUMAB
     Dosage: 200 MILLIGRAM, Q3W?FOA-SOLUTION FOR INJECTION
     Dates: start: 202310, end: 202310
  20. PEMBROLIZUMAB [Suspect]
     Active Substance: PEMBROLIZUMAB
     Dosage: 200 MILLIGRAM, Q3W?FOA-SOLUTION FOR INJECTION
     Dates: start: 202311, end: 202311
  21. PEMBROLIZUMAB [Suspect]
     Active Substance: PEMBROLIZUMAB
     Dosage: 200 MILLIGRAM, Q3W?FOA-SOLUTION FOR INJECTION
     Dates: start: 202311, end: 202311
  22. PEMBROLIZUMAB [Suspect]
     Active Substance: PEMBROLIZUMAB
     Dosage: 200 MILLIGRAM, Q3W?FOA-SOLUTION FOR INJECTION
     Dates: start: 202312, end: 202312
  23. PEMBROLIZUMAB [Suspect]
     Active Substance: PEMBROLIZUMAB
     Dosage: 200 MILLIGRAM, Q3W?FOA-SOLUTION FOR INJECTION
     Dates: start: 202401, end: 202401
  24. PEMBROLIZUMAB [Suspect]
     Active Substance: PEMBROLIZUMAB
     Dosage: 200 MILLIGRAM, Q3W?FOA-SOLUTION FOR INJECTION
     Dates: start: 202402, end: 202402
  25. PEMBROLIZUMAB [Suspect]
     Active Substance: PEMBROLIZUMAB
     Dosage: 200 MILLIGRAM, Q3W?FOA-SOLUTION FOR INJECTION
     Dates: start: 202402, end: 202402
  26. PEMBROLIZUMAB [Suspect]
     Active Substance: PEMBROLIZUMAB
     Dosage: 200 MILLIGRAM, Q3W?FOA-SOLUTION FOR INJECTION
     Dates: start: 202405, end: 202405

REACTIONS (10)
  - Red blood cell transfusion [Unknown]
  - Abdominal pain [Unknown]
  - Malignant neoplasm progression [Unknown]
  - Gastrointestinal injury [Unknown]
  - COVID-19 [Unknown]
  - Therapy partial responder [Unknown]
  - Stomatitis [Unknown]
  - Diarrhoea [Unknown]
  - Appetite disorder [Unknown]
  - Asthenia [Unknown]

NARRATIVE: CASE EVENT DATE: 20220401
